FAERS Safety Report 7539652-6 (Version None)
Quarter: 2011Q2

REPORT INFORMATION
  Report Type: 
  Country: None (occurrence: None)
  Receive Date: 20110609
  Receipt Date: 20110609
  Transmission Date: 20111010
  Serious: Yes (Other)
  Sender: FDA-Public Use
  Company Number: None

PATIENT
  Sex: Female
  Weight: 90.7194 kg

DRUGS (2)
  1. PRISTIQ [Suspect]
     Indication: DEPRESSION
     Dosage: 1 PILL ONCE A DAY PO
     Route: 048
     Dates: start: 20110427, end: 20110606
  2. PRISTIQ [Suspect]

REACTIONS (4)
  - NAUSEA [None]
  - VOMITING [None]
  - DIZZINESS [None]
  - VERTIGO [None]
